FAERS Safety Report 16615736 (Version 1)
Quarter: 2019Q3

REPORT INFORMATION
  Report Type: Spontaneous
  Country: US (occurrence: US)
  Receive Date: 20190723
  Receipt Date: 20190723
  Transmission Date: 20191004
  Serious: No
  Sender: FDA-Public Use
  Company Number: US-ABBVIE-19P-163-2832991-00

PATIENT
  Age: 21 Year
  Sex: Female
  Weight: 71.73 kg

DRUGS (1)
  1. ORILISSA [Suspect]
     Active Substance: ELAGOLIX SODIUM
     Indication: ENDOMETRIOSIS
     Route: 048
     Dates: start: 20190613

REACTIONS (5)
  - Dizziness [Recovering/Resolving]
  - Migraine [Recovering/Resolving]
  - Headache [Not Recovered/Not Resolved]
  - Syncope [Recovered/Resolved]
  - Hot flush [Recovering/Resolving]

NARRATIVE: CASE EVENT DATE: 20190619
